FAERS Safety Report 4280318-6 (Version None)
Quarter: 2004Q1

REPORT INFORMATION
  Report Type: 
  Country: None (occurrence: None)
  Receive Date: 20040126
  Receipt Date: 20040109
  Transmission Date: 20041129
  Serious: Yes (Life-Threatening, Hospitalization)
  Sender: FDA-Public Use
  Company Number: SX04010007

PATIENT
  Age: 55 Year
  Weight: 76.6579 kg

DRUGS (9)
  1. XOPENEX [Suspect]
     Indication: CHRONIC OBSTRUCTIVE AIRWAYS DISEASE
     Dosage: INHALATION X1
     Route: 055
     Dates: start: 20031228
  2. BLINDED (R,R) FORMOTEROL INHALATION SOLUTION [Suspect]
     Indication: CHRONIC OBSTRUCTIVE AIRWAYS DISEASE
  3. THEOPHYLLINE [Concomitant]
  4. ZYRTEC [Concomitant]
  5. RESTORIL [Concomitant]
  6. TYLENOL (CAPLET) [Concomitant]
  7. VICODIN [Concomitant]
  8. PRILOSEC [Concomitant]
  9. ACCOLATE [Concomitant]

REACTIONS (13)
  - ATRIOVENTRICULAR BLOCK FIRST DEGREE [None]
  - AZOTAEMIA [None]
  - BLOOD GLUCOSE INCREASED [None]
  - BLOOD POTASSIUM INCREASED [None]
  - DYSPNOEA [None]
  - HYPONATRAEMIA [None]
  - METABOLIC ACIDOSIS [None]
  - OXYGEN SATURATION DECREASED [None]
  - QRS AXIS ABNORMAL [None]
  - RESPIRATORY ACIDOSIS [None]
  - RESPIRATORY FAILURE [None]
  - SINUS TACHYCARDIA [None]
  - TROPONIN INCREASED [None]
